FAERS Safety Report 5275642-4 (Version None)
Quarter: 2007Q1

REPORT INFORMATION
  Report Type: 
  Country: None (occurrence: None)
  Receive Date: 20070326
  Receipt Date: 20070312
  Transmission Date: 20070707
  Serious: Yes (Other)
  Sender: FDA-Public Use
  Company Number: US-SANOFI-SYNTHELABO-A03200702109

PATIENT
  Sex: Female

DRUGS (6)
  1. REQUIP [Concomitant]
     Dosage: UNK
     Route: 065
  2. DEPAKOTE [Concomitant]
     Dosage: UNK
     Route: 065
  3. TEMAZEPAM [Concomitant]
     Dosage: UNK
     Route: 065
  4. SERROQUEL [Concomitant]
     Dosage: UNK
     Route: 065
  5. AMBIEN [Suspect]
     Indication: INSOMNIA
     Dosage: 40 MG
     Route: 048
     Dates: start: 19970101, end: 20060519
  6. SYNTHROID [Concomitant]
     Dosage: UNK
     Route: 065

REACTIONS (5)
  - AMNESIA [None]
  - IMPAIRED DRIVING ABILITY [None]
  - INTENTIONAL OVERDOSE [None]
  - ROAD TRAFFIC ACCIDENT [None]
  - SLEEP WALKING [None]
